FAERS Safety Report 10766144 (Version 1)
Quarter: 2015Q1

REPORT INFORMATION
  Report Type: Spontaneous
  Country: US (occurrence: None)
  Receive Date: 20150204
  Receipt Date: 20150204
  Transmission Date: 20150721
  Serious: No
  Sender: FDA-Public Use
  Company Number: DL2015-0153

PATIENT
  Age: 25 Year
  Sex: Female

DRUGS (3)
  1. MISOPROSTOL. [Suspect]
     Active Substance: MISOPROSTOL
     Route: 002
     Dates: start: 20141022
  2. MIFEPRISTONE [Suspect]
     Active Substance: MIFEPRISTONE
     Indication: ABORTION INDUCED
     Route: 048
     Dates: start: 20141021
  3. METRONIDAZOLE. [Concomitant]
     Active Substance: METRONIDAZOLE

REACTIONS (6)
  - Asthenia [None]
  - Haemorrhage [None]
  - Dizziness [None]
  - Anaemia [None]
  - Uterine haemorrhage [None]
  - Nausea [None]

NARRATIVE: CASE EVENT DATE: 20151110
